FAERS Safety Report 9439107 (Version 1)
Quarter: 2013Q3

REPORT INFORMATION
  Report Type: Spontaneous
  Country: US (occurrence: US)
  Receive Date: 20130802
  Receipt Date: 20130802
  Transmission Date: 20140515
  Serious: Yes (Other)
  Sender: FDA-Public Use
  Company Number: PHHY2013US081121

PATIENT
  Age: 82 Year
  Sex: Male

DRUGS (5)
  1. OMEPRAZOLE [Suspect]
     Indication: HELICOBACTER INFECTION
     Dosage: 20 MG, BID
  2. AMOXICILLIN [Suspect]
     Indication: HELICOBACTER INFECTION
     Dosage: 500 MG, BID
  3. CLARITHROMYCIN [Suspect]
     Indication: HELICOBACTER INFECTION
     Dosage: 500 MG, BID
  4. INSULIN DETEMIR [Suspect]
     Indication: TYPE 2 DIABETES MELLITUS
     Dosage: 32 U, QD
  5. INSULIN ASPART [Concomitant]

REACTIONS (5)
  - Hypoglycaemia [Recovered/Resolved]
  - Confusional state [Recovered/Resolved]
  - Hyperhidrosis [Recovered/Resolved]
  - Tachycardia [Recovered/Resolved]
  - Drug interaction [Unknown]
